FAERS Safety Report 16711025 (Version 2)
Quarter: 2019Q3

REPORT INFORMATION
  Report Type: Spontaneous
  Country: AU (occurrence: AU)
  Receive Date: 20190816
  Receipt Date: 20190829
  Transmission Date: 20191004
  Serious: Yes (Other)
  Sender: FDA-Public Use
  Company Number: AU-MYLANLABS-2019M1076539

PATIENT
  Sex: Female

DRUGS (1)
  1. RESPRIM FORTE [Suspect]
     Active Substance: SULFAMETHOXAZOLE\TRIMETHOPRIM
     Dosage: UNK

REACTIONS (6)
  - Sleep disorder [Unknown]
  - Malaise [Unknown]
  - Glassy eyes [Unknown]
  - Accidental overdose [Unknown]
  - Ocular hyperaemia [Unknown]
  - Wrong product administered [Unknown]
